FAERS Safety Report 4292476-8 (Version None)
Quarter: 2004Q1

REPORT INFORMATION
  Report Type: 
  Country: None (occurrence: None)
  Receive Date: 20040211
  Receipt Date: 20030508
  Transmission Date: 20041129
  Serious: Yes (Other)
  Sender: FDA-Public Use
  Company Number: PHBS2003CA04899

PATIENT

DRUGS (1)
  1. AREDIA [Suspect]
     Route: 065

REACTIONS (1)
  - GLOMERULONEPHRITIS FOCAL [None]
